FAERS Safety Report 11153272 (Version 1)
Quarter: 2015Q2

REPORT INFORMATION
  Report Type: Spontaneous
  Country: FR (occurrence: FR)
  Receive Date: 20150601
  Receipt Date: 20150601
  Transmission Date: 20150821
  Serious: Yes (Hospitalization)
  Sender: FDA-Public Use
  Company Number: FR-009507513-1505FRA012113

PATIENT
  Age: 68 Year
  Sex: Male

DRUGS (3)
  1. XELODA [Suspect]
     Active Substance: CAPECITABINE
     Dosage: 4 DF, QD
     Route: 048
     Dates: start: 201503
  2. XELODA [Suspect]
     Active Substance: CAPECITABINE
     Dosage: 3 DF, BID
     Route: 048
     Dates: end: 20141110
  3. TEMODAL [Suspect]
     Active Substance: TEMOZOLOMIDE
     Dosage: 1 DF, QD
     Route: 048
     Dates: start: 20141107, end: 20141110

REACTIONS (1)
  - Prostatitis [Recovered/Resolved]

NARRATIVE: CASE EVENT DATE: 20141110
